FAERS Safety Report 5133082-2 (Version None)
Quarter: 2006Q4

REPORT INFORMATION
  Report Type: 
  Country: None (occurrence: None)
  Receive Date: 20061017
  Receipt Date: 20061005
  Transmission Date: 20070319
  Serious: Yes (Other)
  Sender: FDA-Public Use
  Company Number: 2006116674

PATIENT
  Age: 12 Year
  Sex: Female

DRUGS (1)
  1. GENOTROPIN [Suspect]
     Indication: HYPOPITUITARISM
     Dosage: 1.3 MG (1.3 MG, 1 IN 1 D)
     Dates: start: 19990626, end: 20050901

REACTIONS (3)
  - NEOPLASM RECURRENCE [None]
  - NEOPLASM SKIN [None]
  - RENAL NEOPLASM [None]
